FAERS Safety Report 6708094-5 (Version None)
Quarter: 2010Q2

REPORT INFORMATION
  Report Type: 
  Country: None (occurrence: None)
  Receive Date: 20100503
  Receipt Date: 20091014
  Transmission Date: 20101027
  Serious: No
  Sender: FDA-Public Use
  Company Number: US-ASTRAZENECA-2009SE20100

PATIENT
  Age: 59 Year
  Sex: Female
  Weight: 83.5 kg

DRUGS (7)
  1. NEXIUM [Suspect]
     Indication: GASTROOESOPHAGEAL REFLUX DISEASE
     Dosage: 80 MG BID
     Route: 048
     Dates: start: 20010101
  2. CARAFATE [Concomitant]
  3. GLYBURIDE [Concomitant]
  4. SYNTHROID [Concomitant]
  5. TAGAMATE [Concomitant]
  6. MEDICATION FOR GLAUCOMA [Concomitant]
  7. CHEMOTHERAPY [Concomitant]

REACTIONS (3)
  - FUNGAL INFECTION [None]
  - GASTROOESOPHAGEAL REFLUX DISEASE [None]
  - PERICARDITIS [None]
